FAERS Safety Report 8444845-X (Version None)
Quarter: 2012Q2

REPORT INFORMATION
  Report Type: 
  Country: None (occurrence: None)
  Receive Date: 20120618
  Receipt Date: 20120612
  Transmission Date: 20120825
  Serious: Yes (Other)
  Sender: FDA-Public Use
  Company Number: PHEH2012US011836

PATIENT
  Sex: Female

DRUGS (1)
  1. ARCAPTA [Suspect]

REACTIONS (6)
  - ASTHMA [None]
  - CHRONIC OBSTRUCTIVE PULMONARY DISEASE [None]
  - LUNG DISORDER [None]
  - THYROID DISORDER [None]
  - DYSPNOEA [None]
  - NEUROMYOPATHY [None]
